FAERS Safety Report 23711164 (Version 1)
Quarter: 2024Q2

REPORT INFORMATION
  Report Type: Spontaneous
  Country: CN (occurrence: CN)
  Receive Date: 20240405
  Receipt Date: 20240405
  Transmission Date: 20240716
  Serious: No
  Sender: FDA-Public Use
  Company Number: CN-ALKEM LABORATORIES LIMITED-CN-ALKEM-2024-02631

PATIENT
  Age: 4 Month
  Sex: Male

DRUGS (2)
  1. SIROLIMUS [Suspect]
     Active Substance: SIROLIMUS
     Indication: Naevus flammeus
     Dosage: UNK, BID (1.5-2 MILLIGRAM/SQUARE METER) (ADMINISTERED ONCE OR TWICE DAILY AT APPROXIMATELY 12 HOUR I
     Route: 065
  2. SIROLIMUS [Suspect]
     Active Substance: SIROLIMUS
     Indication: Phakomatosis

REACTIONS (3)
  - Therapy non-responder [Unknown]
  - Treatment noncompliance [Unknown]
  - Off label use [Unknown]
